FAERS Safety Report 12727057 (Version 3)
Quarter: 2016Q3

REPORT INFORMATION
  Report Type: Report from Study
  Country: JP (occurrence: JP)
  Receive Date: 20160909
  Receipt Date: 20160929
  Transmission Date: 20161109
  Serious: Yes (Other)
  Sender: FDA-Public Use
  Company Number: JP-ROCHE-1827595

PATIENT
  Age: 76 Year
  Sex: Male
  Weight: 61 kg

DRUGS (3)
  1. VEMURAFENIB [Suspect]
     Active Substance: VEMURAFENIB
     Indication: MALIGNANT MELANOMA
     Dosage: DOSAGE IS UNCERTAIN.
     Route: 048
     Dates: start: 20151116
  2. OMEPRAL [Concomitant]
     Active Substance: OMEPRAZOLE
     Dosage: THE FRACTIONATION DOSE FREQUENCY IS UNCERTAIN.
     Route: 048
  3. BUFFERIN A (JAPAN) [Concomitant]
     Dosage: THE FRACTIONATION DOSE FREQUENCY IS UNCERTAIN.
     Route: 048

REACTIONS (5)
  - Occipital neuralgia [Recovered/Resolved]
  - Skin papilloma [Unknown]
  - Hepatic function abnormal [Recovered/Resolved]
  - Hyperkeratosis [Unknown]
  - Platelet count decreased [Recovered/Resolved]

NARRATIVE: CASE EVENT DATE: 20151120
